FAERS Safety Report 25220491 (Version 5)
Quarter: 2025Q4

REPORT INFORMATION
  Report Type: Spontaneous
  Country: US (occurrence: US)
  Receive Date: 20250421
  Receipt Date: 20251210
  Transmission Date: 20260118
  Serious: No
  Sender: DR REDDYS
  Company Number: US-DRL-USA-USA/2025/04/005375

PATIENT
  Age: 64 Year
  Sex: Male
  Weight: 70.31 kg

DRUGS (12)
  1. OLANZAPINE [Suspect]
     Active Substance: OLANZAPINE
     Indication: Schizophrenia
     Dosage: HALF TABLET AT BEDTIME
     Route: 048
     Dates: start: 20250104
  2. OLANZAPINE [Suspect]
     Active Substance: OLANZAPINE
     Dosage: HALF TABLET AT BEDTIME
     Route: 048
     Dates: start: 202501
  3. OLANZAPINE [Suspect]
     Active Substance: OLANZAPINE
     Dosage: HALF TABLET AT BEDTIME
     Route: 048
  4. OLANZAPINE [Suspect]
     Active Substance: OLANZAPINE
     Dosage: HALF TABLET AT BEDTIME
     Route: 048
  5. OLANZAPINE [Suspect]
     Active Substance: OLANZAPINE
     Dosage: HALF TABLET AT BEDTIME
     Route: 048
     Dates: start: 20250201
  6. OLANZAPINE [Suspect]
     Active Substance: OLANZAPINE
     Dosage: HALF TABLET AT BEDTIME
     Route: 048
     Dates: start: 20250307, end: 20250401
  7. MELATONIN [Suspect]
     Active Substance: MELATONIN
     Indication: Product used for unknown indication
     Route: 065
  8. ATORVASTATIN [Concomitant]
     Active Substance: ATORVASTATIN
     Indication: Product used for unknown indication
     Dosage: AT BEDTIME
  9. LEVOTHYROXINE [Concomitant]
     Active Substance: LEVOTHYROXINE
     Indication: Product used for unknown indication
     Dosage: 30MINS BEFORE BREAKFAST
  10. Vitamin D OTC [Concomitant]
     Indication: Product used for unknown indication
     Dosage: ONE IN THE MORNING
  11. FISH OIL [Concomitant]
     Active Substance: FISH OIL
     Indication: Product used for unknown indication
     Dosage: 1G ONE IN THE MORNING
  12. MELATONIN [Concomitant]
     Active Substance: MELATONIN
     Indication: Product used for unknown indication
     Dosage: AT NIGHT

REACTIONS (14)
  - Insomnia [Not Recovered/Not Resolved]
  - Tinnitus [Not Recovered/Not Resolved]
  - Ill-defined disorder [Not Recovered/Not Resolved]
  - Blood cholesterol increased [Not Recovered/Not Resolved]
  - Paraesthesia [Not Recovered/Not Resolved]
  - Headache [Not Recovered/Not Resolved]
  - Temperature regulation disorder [Not Recovered/Not Resolved]
  - Abdominal pain upper [Not Recovered/Not Resolved]
  - Dry mouth [Not Recovered/Not Resolved]
  - Palpitations [Not Recovered/Not Resolved]
  - Asthenia [Not Recovered/Not Resolved]
  - Tremor [Not Recovered/Not Resolved]
  - Anxiety [Not Recovered/Not Resolved]
  - Flushing [Not Recovered/Not Resolved]

NARRATIVE: CASE EVENT DATE: 20250301
